FAERS Safety Report 12264446 (Version 2)
Quarter: 2016Q2

REPORT INFORMATION
  Report Type: Spontaneous
  Country: US (occurrence: US)
  Receive Date: 20160413
  Receipt Date: 20160513
  Transmission Date: 20160815
  Serious: No
  Sender: FDA-Public Use
  Company Number: US-JNJFOC-20160306256

PATIENT
  Sex: Female
  Weight: 63.5 kg

DRUGS (16)
  1. COQ10 [Concomitant]
     Active Substance: UBIDECARENONE
     Indication: GENERAL PHYSICAL CONDITION
     Dosage: 2 YEARS
     Route: 065
  2. VITAMIN E NOS [Concomitant]
     Indication: GENERAL PHYSICAL CONDITION
     Dosage: COUPLE WEEKS
     Route: 065
  3. OMEGA 3 [Concomitant]
     Active Substance: OMEGA-3 FATTY ACIDS
     Indication: CARDIAC DISORDER
     Dosage: 3+YEARS
     Route: 065
  4. LYCOPENE [Concomitant]
     Active Substance: LYCOPENE
     Indication: HAIR GROWTH ABNORMAL
     Dosage: 2 WEEKS
     Route: 065
  5. WOMENS ROGAINE UNSCENTED [Suspect]
     Active Substance: MINOXIDIL
     Indication: ALOPECIA
     Dosage: SQUIRT STRIGHT FROM BOTTLE, ONTO SCALP
     Route: 061
  6. GINGER. [Concomitant]
     Active Substance: GINGER
     Indication: GENERAL PHYSICAL CONDITION
     Dosage: 3 DAY, ??INTERVAL: COUPLE MONTHS
     Route: 065
  7. VITAMIN B COMPLEX [Concomitant]
     Active Substance: CYANOCOBALAMIN\DEXPANTHENOL\NIACINAMIDE\PYRIDOXINE HYDROCHLORIDE\RIBOFLAVIN 5^-PHOSPHATE SODIUM\THIAMINE HYDROCHLORIDE\VITAMIN B COMPLEX
     Indication: GENERAL PHYSICAL CONDITION
     Dosage: 2 DAY, 1 YEAR
     Route: 065
  8. VITAMIN D [Concomitant]
     Active Substance: CHOLECALCIFEROL
     Indication: GENERAL PHYSICAL CONDITION
     Dosage: MANY YEARS
     Route: 065
  9. ALL OTHER THERAPEUTIC PRODUCTS [Concomitant]
     Active Substance: UNSPECIFIED INGREDIENT
     Indication: HAIR GROWTH ABNORMAL
     Dosage: 2 WEEKS
     Route: 065
  10. SELENIUM [Concomitant]
     Active Substance: SELENIUM
     Indication: HAIR GROWTH ABNORMAL
     Dosage: 2 WEEKS
     Route: 065
  11. ALL OTHER THERAPEUTIC PRODUCTS [Concomitant]
     Active Substance: UNSPECIFIED INGREDIENT
     Indication: BLOOD CHOLESTEROL
     Dosage: COUPLE YEARS
     Route: 065
  12. WOMENS ROGAINE UNSCENTED [Suspect]
     Active Substance: MINOXIDIL
     Route: 061
  13. BIOTIN [Concomitant]
     Active Substance: BIOTIN
     Indication: NAIL GROWTH ABNORMAL
     Dosage: DOSE: 10,000 MCG/DAY INTERVAL: 2 WEEKS
     Route: 065
  14. BIOTIN [Concomitant]
     Active Substance: BIOTIN
     Indication: HAIR GROWTH ABNORMAL
     Dosage: DOSE: 10,000 MCG/DAY INTERVAL: 2 WEEKS
     Route: 065
  15. CALCIUM CITRATE [Concomitant]
     Active Substance: CALCIUM CITRATE
     Indication: GENERAL PHYSICAL CONDITION
     Dosage: MANY YEARS
     Route: 065
  16. TURMERIC [Concomitant]
     Active Substance: TURMERIC
     Indication: GENERAL PHYSICAL CONDITION
     Dosage: 6 MONTHS
     Route: 065

REACTIONS (4)
  - Hair growth abnormal [Not Recovered/Not Resolved]
  - Weight increased [Unknown]
  - Pruritus [Not Recovered/Not Resolved]
  - Wrong technique in product usage process [Not Recovered/Not Resolved]
